FAERS Safety Report 7268417-8 (Version None)
Quarter: 2011Q1

REPORT INFORMATION
  Report Type: 
  Country: None (occurrence: None)
  Receive Date: 20110201
  Receipt Date: 20110120
  Transmission Date: 20110831
  Serious: Yes (Hospitalization, Other)
  Sender: FDA-Public Use
  Company Number: US-PFIZER INC-US-WYE-H17496110

PATIENT
  Sex: Female
  Weight: 69.4 kg

DRUGS (18)
  1. BAPINEUZUMAB [Suspect]
     Dosage: BLINDED DOSE
     Route: 051
     Dates: start: 20100909, end: 20100909
  2. MEDROL [Suspect]
     Indication: ANTIALLERGIC THERAPY
  3. PREDNISONE [Suspect]
     Indication: ANTIALLERGIC THERAPY
  4. LAMICTAL [Concomitant]
  5. SEROQUEL [Concomitant]
  6. MEDROL [Suspect]
     Indication: ANTIINFLAMMATORY THERAPY
     Dosage: UNK
     Dates: start: 20100727, end: 20100728
  7. GALANTAMINE HYDROBROMIDE [Concomitant]
  8. BAPINEUZUMAB [Suspect]
     Dosage: BLINDED DOSE
     Dates: start: 20101209, end: 20101209
  9. PREDNISONE [Suspect]
     Indication: INFLAMMATION
     Dosage: UNK
     Dates: start: 20100727, end: 20100727
  10. BAPINEUZUMAB [Suspect]
     Indication: DEMENTIA ALZHEIMER'S TYPE
     Dosage: BLINDED DOSE
     Route: 051
     Dates: start: 20100318, end: 20100318
  11. AMITRIPTYLINE [Concomitant]
  12. BIOTIN [Concomitant]
  13. PREMPRO [Concomitant]
  14. WELLBATRIN [Suspect]
  15. MULTI-VITAMINS [Concomitant]
  16. TOPAMAX [Concomitant]
  17. BAPINEUZUMAB [Suspect]
     Dosage: BLINDED DOSE
     Route: 051
     Dates: start: 20100610, end: 20100610
  18. TEMAZEPAM [Concomitant]

REACTIONS (1)
  - HALLUCINATION [None]
